FAERS Safety Report 8187556-0 (Version None)
Quarter: 2012Q1

REPORT INFORMATION
  Report Type: 
  Country: None (occurrence: None)
  Receive Date: 20120302
  Receipt Date: 20120222
  Transmission Date: 20120608
  Serious: Yes (Death, Life-Threatening, Hospitalization)
  Sender: FDA-Public Use
  Company Number: 1203121

PATIENT
  Sex: Female
  Weight: 77.4 kg

DRUGS (4)
  1. (RITUXIMAB) [Suspect]
     Indication: CHRONIC LYMPHOCYTIC LEUKAEMIA
     Dosage: 375 MG/M2 OVER 4 HR/ON ONE DAY ON WEEKS 1,5, 9, 13,17 AND 21  INTRAVENOUS (NOT OTHERWISE SPECIFIED)
     Route: 042
     Dates: start: 20080616, end: 20081117
  2. RITUXAN [Concomitant]
  3. NIPENT [Suspect]
     Indication: CHRONIC LYMPHOCYTIC LEUKAEMIA
     Dosage: 4 MG/M2 X 1 DAY WEEKS 1, 5, 9, 13, 17 AND 21  INTRAVENOUS (NOT OTHERWISE SPECIFIED)
     Route: 042
     Dates: start: 20080616, end: 20081117
  4. CYCLOPHOSPHAMIDE [Suspect]
     Indication: CHRONIC LYMPHOCYTIC LEUKAEMIA
     Dosage: 600 MG/M2 ON WEEKS 1,5,9, 13, 17 AND 21  INTRAVENOUS (NOT OTHERWISE SPECIFIED)
     Route: 042
     Dates: start: 20080616, end: 20081117

REACTIONS (7)
  - REFUSAL OF TREATMENT BY PATIENT [None]
  - CHRONIC LYMPHOCYTIC LEUKAEMIA [None]
  - LYMPHADENOPATHY [None]
  - LYMPH NODE PAIN [None]
  - ANAEMIA HAEMOLYTIC AUTOIMMUNE [None]
  - ASCITES [None]
  - METASTATIC NEOPLASM [None]
